FAERS Safety Report 12724803 (Version 1)
Quarter: 2016Q3

REPORT INFORMATION
  Report Type: Spontaneous
  Country: US (occurrence: US)
  Receive Date: 20160908
  Receipt Date: 20160908
  Transmission Date: 20161109
  Serious: No
  Sender: FDA-Public Use
  Company Number: US-TAKEDA-2016TUS014550

PATIENT

DRUGS (1)
  1. ENTYVIO [Suspect]
     Active Substance: VEDOLIZUMAB
     Indication: COLITIS ULCERATIVE
     Dosage: UNK
     Route: 065

REACTIONS (7)
  - Colitis ulcerative [Unknown]
  - Headache [Recovered/Resolved]
  - Asthma [Unknown]
  - Oesophageal candidiasis [Unknown]
  - Muscle spasms [Recovered/Resolved]
  - Oropharyngeal pain [Unknown]
  - Ocular hyperaemia [Unknown]
